FAERS Safety Report 20426471 (Version 1)
Quarter: 2022Q1

REPORT INFORMATION
  Report Type: Report from Study
  Country: US (occurrence: US)
  Receive Date: 20220204
  Receipt Date: 20220204
  Transmission Date: 20220424
  Serious: No
  Sender: FDA-Public Use
  Company Number: US-EXELIXIS-CABO-21042172

PATIENT
  Age: 69 Year
  Sex: Male

DRUGS (2)
  1. CABOMETYX [Suspect]
     Active Substance: CABOZANTINIB S-MALATE
     Indication: Renal cell carcinoma
     Dosage: 40 MG, QD
     Dates: start: 20210702
  2. OPDIVO [Suspect]
     Active Substance: NIVOLUMAB
     Indication: Renal cell carcinoma
     Dosage: INFUSION EVERY 2 WEEKS ON FRIDAYS
     Dates: start: 20210702

REACTIONS (9)
  - Peripheral swelling [Unknown]
  - Heart rate decreased [Unknown]
  - Bone pain [Not Recovered/Not Resolved]
  - Blood glucose decreased [Unknown]
  - White blood cell count decreased [Unknown]
  - Fatigue [Unknown]
  - Constipation [Unknown]
  - Nausea [Unknown]
  - Hypertension [Unknown]

NARRATIVE: CASE EVENT DATE: 20210701
